FAERS Safety Report 22604270 (Version 8)
Quarter: 2023Q4

REPORT INFORMATION
  Report Type: Spontaneous
  Country: PL (occurrence: PL)
  Receive Date: 20230615
  Receipt Date: 20231031
  Transmission Date: 20240110
  Serious: Yes (Other)
  Sender: FDA-Public Use
  Company Number: PL-MYLANLABS-2023M1058697

PATIENT
  Age: 60 Year
  Sex: Male

DRUGS (33)
  1. MIANSERIN [Suspect]
     Active Substance: MIANSERIN
     Indication: Sleep disorder
     Dosage: 30 MILLIGRAM,QD (BEFORE NIGHT)
     Route: 065
  2. ZOLPIDEM [Suspect]
     Active Substance: ZOLPIDEM TARTRATE
     Indication: Bipolar disorder
     Dosage: 10 MILLIGRAM, QD (10 MG AT NIGHT )
     Route: 065
  3. ZOLPIDEM [Suspect]
     Active Substance: ZOLPIDEM TARTRATE
     Indication: Depression
  4. VENLAFAXINE [Suspect]
     Active Substance: VENLAFAXINE HYDROCHLORIDE
     Indication: Anxiety
     Dosage: 75 MILLIGRAM, QD (75-150MG/24 HOUR)
     Route: 065
  5. VENLAFAXINE [Suspect]
     Active Substance: VENLAFAXINE HYDROCHLORIDE
     Indication: Psychomotor retardation
     Dosage: 150 MILLIGRAM, QD (75-150MG/24 HOUR)
     Route: 065
  6. VENLAFAXINE [Suspect]
     Active Substance: VENLAFAXINE HYDROCHLORIDE
     Indication: Affective disorder
     Dosage: 300 MILLIGRAM, QD (DOSE INCREASED)
     Route: 065
  7. VENLAFAXINE [Suspect]
     Active Substance: VENLAFAXINE HYDROCHLORIDE
     Indication: Bipolar disorder
  8. PAROXETINE [Suspect]
     Active Substance: PAROXETINE
     Indication: Bipolar disorder
     Dosage: DOSES INCREASING TO 30 MG
     Route: 065
  9. PAROXETINE [Suspect]
     Active Substance: PAROXETINE
     Indication: Anxiety
     Dosage: 40 MILLIGRAM, QD
     Route: 065
  10. PAROXETINE [Suspect]
     Active Substance: PAROXETINE
     Dosage: UNK
     Route: 065
  11. QUETIAPINE [Suspect]
     Active Substance: QUETIAPINE
     Indication: Anxiety
     Dosage: 300 MG, QD
     Route: 065
  12. QUETIAPINE [Suspect]
     Active Substance: QUETIAPINE
     Indication: Bipolar disorder
     Dosage: UNK
     Route: 065
  13. LAMOTRIGINE [Suspect]
     Active Substance: LAMOTRIGINE
     Indication: Bipolar disorder
     Dosage: 150 MILLIGRAM, QD (UP TO 150 MG/24 H)
     Route: 065
  14. LAMOTRIGINE [Suspect]
     Active Substance: LAMOTRIGINE
     Indication: Anxiety
  15. LAMOTRIGINE [Suspect]
     Active Substance: LAMOTRIGINE
     Indication: Psychomotor retardation
  16. LAMOTRIGINE [Suspect]
     Active Substance: LAMOTRIGINE
     Indication: Affective disorder
  17. PREGABALIN [Suspect]
     Active Substance: PREGABALIN
     Indication: Bipolar disorder
     Dosage: 150 MILLIGRAM, QH (150 MILLIGRAM/24HOUR)
     Route: 065
  18. PREGABALIN [Suspect]
     Active Substance: PREGABALIN
     Dosage: 150 MILLIGRAM, QD
     Route: 065
  19. HYDROXYZINE [Suspect]
     Active Substance: HYDROXYZINE HYDROCHLORIDE
     Indication: Bipolar disorder
     Dosage: 125 MILLIGRAM, QH
     Route: 065
  20. HYDROXYZINE [Suspect]
     Active Substance: HYDROXYZINE HYDROCHLORIDE
     Dosage: 100 MILLIGRAM, QH
     Route: 065
  21. LORAZEPAM [Suspect]
     Active Substance: LORAZEPAM
     Indication: Bipolar disorder
     Dosage: 0.5-1 MG, SINGLE DOSES
     Route: 065
  22. LORAZEPAM [Suspect]
     Active Substance: LORAZEPAM
     Indication: Psychomotor retardation
     Dosage: DOSES INCREASING TO 8 MG/24 H
     Route: 065
  23. LORAZEPAM [Suspect]
     Active Substance: LORAZEPAM
     Indication: Affective disorder
     Dosage: WAS LOWERED TO 2.5 MG/24 H
     Route: 065
  24. LORAZEPAM [Suspect]
     Active Substance: LORAZEPAM
     Indication: Anxiety
  25. REBOXETINE [Suspect]
     Active Substance: REBOXETINE
     Indication: Bipolar disorder
     Dosage: 4 MILLIGRAM, QH
     Route: 065
  26. REBOXETINE [Suspect]
     Active Substance: REBOXETINE
     Indication: Depression
     Dosage: 8 MILLIGRAM, QH
     Route: 065
  27. REBOXETINE [Suspect]
     Active Substance: REBOXETINE
     Dosage: 4 MILLIGRAM, QD (4 MG/24HR)
     Route: 065
  28. REBOXETINE [Suspect]
     Active Substance: REBOXETINE
     Dosage: 8 MILLIGRAM, QD (8 MG/24HR)
     Route: 065
  29. PROMETHAZINE [Suspect]
     Active Substance: PROMETHAZINE HYDROCHLORIDE
     Indication: Bipolar disorder
     Dosage: 100 MILLIGRAM, QD (PER 24 HOUR)
     Route: 065
  30. LITHIUM CARBONATE [Concomitant]
     Active Substance: LITHIUM CARBONATE
     Indication: Bipolar disorder
     Dosage: 1250 MILLIGRAM, QD
     Route: 065
  31. LITHIUM CARBONATE [Concomitant]
     Active Substance: LITHIUM CARBONATE
     Indication: Psychomotor retardation
     Dosage: 1500 MILLIGRAM, QD
     Route: 065
  32. LITHIUM CARBONATE [Concomitant]
     Active Substance: LITHIUM CARBONATE
     Indication: Depression
     Dosage: 500 MILLIGRAM, QD
     Route: 065
  33. LITHIUM CARBONATE [Concomitant]
     Active Substance: LITHIUM CARBONATE
     Indication: Suicidal ideation

REACTIONS (15)
  - Drug dependence [Recovered/Resolved]
  - Drug abuse [Unknown]
  - Therapeutic product effect incomplete [Unknown]
  - Hepatic enzyme increased [Unknown]
  - Withdrawal syndrome [Recovered/Resolved]
  - Sleep disorder [Recovering/Resolving]
  - Fear [Recovering/Resolving]
  - Depressed mood [Recovering/Resolving]
  - Anxiety [Recovering/Resolving]
  - Disturbance in attention [Recovering/Resolving]
  - Cognitive disorder [Recovering/Resolving]
  - Depression [Recovering/Resolving]
  - Impaired work ability [Recovering/Resolving]
  - Therapeutic response decreased [Unknown]
  - Off label use [Unknown]
